FAERS Safety Report 9769539 (Version 1)
Quarter: 2013Q4

REPORT INFORMATION
  Report Type: Spontaneous
  Country: US (occurrence: None)
  Receive Date: 20131217
  Receipt Date: 20131217
  Transmission Date: 20140711
  Serious: Yes (Hospitalization)
  Sender: FDA-Public Use
  Company Number: None

PATIENT
  Age: 22 Year
  Sex: Female
  Weight: 83.64 kg

DRUGS (1)
  1. DACTINOMYCIN [Suspect]

REACTIONS (11)
  - Dizziness [None]
  - Musculoskeletal stiffness [None]
  - Dyspnoea [None]
  - Electrocardiogram T wave abnormal [None]
  - Electrocardiogram abnormal [None]
  - Hernia [None]
  - Psychogenic seizure [None]
  - Gastrooesophageal reflux disease [None]
  - Blood culture positive [None]
  - Staphylococcus test positive [None]
  - Staphylococcus test positive [None]
